FAERS Safety Report 18337390 (Version 4)
Quarter: 2021Q3

REPORT INFORMATION
  Report Type: Spontaneous
  Country: US (occurrence: US)
  Receive Date: 20201002
  Receipt Date: 20210705
  Transmission Date: 20211014
  Serious: Yes (Hospitalization, Other)
  Sender: FDA-Public Use
  Company Number: US-ASTRAZENECA-2020SF25300

PATIENT
  Age: 18493 Day
  Sex: Female
  Weight: 93.4 kg

DRUGS (62)
  1. FARXIGA [Suspect]
     Active Substance: DAPAGLIFLOZIN PROPANEDIOL
     Indication: BLOOD PRESSURE DECREASED
     Route: 048
     Dates: start: 20150207, end: 201801
  2. CIPROFLOXACIN. [Concomitant]
     Active Substance: CIPROFLOXACIN
  3. OXYCODONE?ACETAMINOPHEN [Concomitant]
     Active Substance: ACETAMINOPHEN\OXYCODONE HYDROCHLORIDE
  4. DOXYCYCLINE HYCLATE. [Concomitant]
     Active Substance: DOXYCYCLINE HYCLATE
  5. IMITREX [Concomitant]
     Active Substance: SUMATRIPTAN SUCCINATE
  6. PANTOPRAZOLE [Concomitant]
     Active Substance: PANTOPRAZOLE
     Dates: start: 20210101
  7. METOPROLOL. [Concomitant]
     Active Substance: METOPROLOL
  8. MIDAZOLAM. [Concomitant]
     Active Substance: MIDAZOLAM
  9. MUPIROCIN. [Concomitant]
     Active Substance: MUPIROCIN
  10. ESZOPICLONE. [Concomitant]
     Active Substance: ESZOPICLONE
  11. MORPHINE [Concomitant]
     Active Substance: MORPHINE
  12. VANCOMYCIN [Concomitant]
     Active Substance: VANCOMYCIN
  13. PHYTONADIONE. [Concomitant]
     Active Substance: PHYTONADIONE
  14. FARXIGA [Suspect]
     Active Substance: DAPAGLIFLOZIN PROPANEDIOL
     Indication: TYPE 2 DIABETES MELLITUS
     Route: 048
     Dates: start: 20150207, end: 201801
  15. VIGAMOX [Concomitant]
     Active Substance: MOXIFLOXACIN HYDROCHLORIDE
  16. DIFFERIN [Concomitant]
     Active Substance: ADAPALENE
  17. ZALEPLON. [Concomitant]
     Active Substance: ZALEPLON
  18. HYDROMORPHONE [Concomitant]
     Active Substance: HYDROMORPHONE
  19. ASPIRIN. [Concomitant]
     Active Substance: ASPIRIN
     Dates: start: 20210101
  20. VIBERZI [Concomitant]
     Active Substance: ELUXADOLINE
  21. METRONIDAZOLE. [Concomitant]
     Active Substance: METRONIDAZOLE
  22. CEPHALEXIN. [Concomitant]
     Active Substance: CEPHALEXIN
  23. TRULICITY [Concomitant]
     Active Substance: DULAGLUTIDE
  24. LORAZEPAM. [Concomitant]
     Active Substance: LORAZEPAM
  25. ABILIFY [Concomitant]
     Active Substance: ARIPIPRAZOLE
  26. TRETINOIN. [Concomitant]
     Active Substance: TRETINOIN
  27. INSULIN GLARGINE [Concomitant]
     Active Substance: INSULIN GLARGINE
     Dates: start: 20210101
  28. RIFAXIMIN. [Concomitant]
     Active Substance: RIFAXIMIN
     Dates: start: 20210101
  29. FARXIGA [Suspect]
     Active Substance: DAPAGLIFLOZIN PROPANEDIOL
     Indication: WEIGHT DECREASED
     Route: 048
     Dates: start: 20150207, end: 201801
  30. PAROXETINE. [Concomitant]
     Active Substance: PAROXETINE
  31. VICTOZA [Concomitant]
     Active Substance: LIRAGLUTIDE
  32. LUMIGAN [Concomitant]
     Active Substance: BIMATOPROST
  33. QUETIAPINE. [Concomitant]
     Active Substance: QUETIAPINE
  34. PAXIL [Concomitant]
     Active Substance: PAROXETINE HYDROCHLORIDE
  35. ATORVASTATIN [Concomitant]
     Active Substance: ATORVASTATIN
     Dates: start: 20210101
  36. BENZONATATE. [Concomitant]
     Active Substance: BENZONATATE
  37. BYETTA [Concomitant]
     Active Substance: EXENATIDE
  38. CEFUROXIME. [Concomitant]
     Active Substance: CEFUROXIME
  39. FUROSEMIDE. [Concomitant]
     Active Substance: FUROSEMIDE
     Dates: start: 20210101
  40. ENOXAPARIN [Concomitant]
     Active Substance: ENOXAPARIN
     Dates: start: 20210101
  41. VANCOMYCIN [Concomitant]
     Active Substance: VANCOMYCIN
  42. LIDOCAINE. [Concomitant]
     Active Substance: LIDOCAINE
  43. ONDANSETRON [Concomitant]
     Active Substance: ONDANSETRON
  44. PREDNISONE. [Concomitant]
     Active Substance: PREDNISONE
  45. SYNTHROID [Concomitant]
     Active Substance: LEVOTHYROXINE SODIUM
  46. HUMULIN NOS [Concomitant]
     Active Substance: INSULIN HUMAN
  47. SIMVASTATIN. [Concomitant]
     Active Substance: SIMVASTATIN
  48. COMBIGAN [Concomitant]
     Active Substance: BRIMONIDINE TARTRATE\TIMOLOL MALEATE
  49. ORPHENADRINE [Concomitant]
     Active Substance: ORPHENADRINE
  50. NADOLOL. [Concomitant]
     Active Substance: NADOLOL
  51. PROAIR HFA [Concomitant]
     Active Substance: ALBUTEROL SULFATE
  52. IMIQUIMOD. [Concomitant]
     Active Substance: IMIQUIMOD
  53. LEVOTHYROXINE. [Concomitant]
     Active Substance: LEVOTHYROXINE
  54. RIZATRIPTAN. [Concomitant]
     Active Substance: RIZATRIPTAN
  55. HYOPHEN [Concomitant]
     Active Substance: BENZOIC ACID\HYOSCYAMINE SULFATE\METHENAMINE\METHYLENE BLUE\PHENYL SALICYLATE
  56. LANTUS [Concomitant]
     Active Substance: INSULIN GLARGINE
  57. OMEPRAZOLE. [Concomitant]
     Active Substance: OMEPRAZOLE
  58. ACETAZOLAMIDE. [Concomitant]
     Active Substance: ACETAZOLAMIDE
  59. ONDANSETRON [Concomitant]
     Active Substance: ONDANSETRON
  60. GLUCOPHAGE [Concomitant]
     Active Substance: METFORMIN HYDROCHLORIDE
  61. MEDROL [Concomitant]
     Active Substance: METHYLPREDNISOLONE
  62. OXYCODONE [Concomitant]
     Active Substance: OXYCODONE

REACTIONS (8)
  - Fournier^s gangrene [Unknown]
  - Urinary tract infection [Unknown]
  - Groin abscess [Unknown]
  - Sepsis [Unknown]
  - Abscess limb [Unknown]
  - Erythema [Unknown]
  - Necrotising soft tissue infection [Unknown]
  - Septic shock [Unknown]

NARRATIVE: CASE EVENT DATE: 20171222
